FAERS Safety Report 6808054-X (Version None)
Quarter: 2010Q2

REPORT INFORMATION
  Report Type: 
  Country: None (occurrence: None)
  Receive Date: 20100629
  Receipt Date: 20090516
  Transmission Date: 20101027
  Serious: Yes (Other)
  Sender: FDA-Public Use
  Company Number: US-PFIZER INC-2009188860

PATIENT
  Sex: Female

DRUGS (3)
  1. XANAX [Suspect]
     Indication: DEPRESSION
     Dosage: 5 MG, UNK
  2. KLONOPIN [Suspect]
  3. REMERON [Concomitant]

REACTIONS (6)
  - ANXIETY [None]
  - CARDIAC DISORDER [None]
  - DEPRESSION [None]
  - DYSPNOEA [None]
  - FEAR [None]
  - WITHDRAWAL SYNDROME [None]
